FAERS Safety Report 11061945 (Version 2)
Quarter: 2015Q2

REPORT INFORMATION
  Report Type: Spontaneous
  Country: US (occurrence: None)
  Receive Date: 20150414
  Receipt Date: 20150424
  Transmission Date: 20150821
  Serious: Yes (Hospitalization)
  Sender: FDA-Public Use
  Company Number: 1713747-2015-99901

PATIENT
  Sex: Female

DRUGS (9)
  1. LIBERTY CYCLER AND TUBING SETS [Concomitant]
  2. CALCITRIOL. [Concomitant]
     Active Substance: CALCITRIOL
  3. EPOETIN ALFA [Concomitant]
     Active Substance: ERYTHROPOIETIN
  4. CINACALCET [Concomitant]
     Active Substance: CINACALCET
  5. SCVCLAMER CARBONATE [Concomitant]
  6. GENTAMYCIN OPHTHALMIC SOLUTION [Concomitant]
  7. ENALAPRIL [Concomitant]
     Active Substance: ENALAPRIL
  8. FERROUS SULFATE [Concomitant]
     Active Substance: FERROUS SULFATE\FERROUS SULFATE, DRIED
  9. DELFLEX [Suspect]
     Active Substance: CALCIUM CHLORIDE\DEXTROSE MONOHYDRATE\MAGNESIUM CHLORIDE\SODIUM CHLORIDE\SODIUM LACTATE
     Indication: NEPHROPATHY
     Dosage: PERITONEAL DIALYSIS
     Dates: start: 20131208

REACTIONS (1)
  - Peritonitis [None]

NARRATIVE: CASE EVENT DATE: 20131208
